FAERS Safety Report 23737734 (Version 1)
Quarter: 2024Q2

REPORT INFORMATION
  Report Type: Report from Study
  Country: DE (occurrence: DE)
  Receive Date: 20240412
  Receipt Date: 20240412
  Transmission Date: 20240716
  Serious: Yes (Death, Hospitalization)
  Sender: FDA-Public Use
  Company Number: DE-JNJFOC-20230821048

PATIENT
  Age: 75 Year
  Sex: Male

DRUGS (13)
  1. SIMPONI [Suspect]
     Active Substance: GOLIMUMAB
     Indication: Rheumatoid arthritis
     Dosage: THERAPY END DATE :25/OCT/2022
     Route: 058
     Dates: start: 202203
  2. METHOTREXATE SODIUM [Suspect]
     Active Substance: METHOTREXATE SODIUM
     Indication: Rheumatoid arthritis
     Dosage: THERAPY END DATE: /OCT/2022
     Route: 065
  3. PREDNISOLONE [Concomitant]
     Active Substance: PREDNISOLONE
  4. METOPROLOL [Concomitant]
     Active Substance: METOPROLOL
  5. DIGITOXIN [Concomitant]
     Active Substance: DIGITOXIN
  6. ENALAPRIL [Concomitant]
     Active Substance: ENALAPRIL
  7. ATORVASTATIN [Concomitant]
     Active Substance: ATORVASTATIN
  8. ASPIRIN [Concomitant]
     Active Substance: ASPIRIN
  9. SPIRIVA [Concomitant]
     Active Substance: TIOTROPIUM BROMIDE MONOHYDRATE
  10. PIROXICAM [Concomitant]
     Active Substance: PIROXICAM
  11. IMRALDI [Concomitant]
     Active Substance: ADALIMUMAB
     Dates: start: 20190108
  12. IMRALDI [Concomitant]
     Active Substance: ADALIMUMAB
     Dates: start: 20190328
  13. OLUMIANT [Concomitant]
     Active Substance: BARICITINIB
     Dates: start: 20190618

REACTIONS (3)
  - Pulmonary hypertension [Fatal]
  - Acute respiratory failure [Fatal]
  - COVID-19 [Unknown]

NARRATIVE: CASE EVENT DATE: 20220701
